FAERS Safety Report 7056013-7 (Version None)
Quarter: 2010Q4

REPORT INFORMATION
  Report Type: 
  Country: None (occurrence: None)
  Receive Date: 20101021
  Receipt Date: 20101020
  Transmission Date: 20110411
  Serious: Yes (Hospitalization, Congenital Anomaly)
  Sender: FDA-Public Use
  Company Number: A0887736A

PATIENT
  Sex: Male
  Weight: 2.6 kg

DRUGS (4)
  1. PAXIL CR [Suspect]
     Indication: PRODUCT USED FOR UNKNOWN INDICATION
  2. SEROQUEL [Concomitant]
  3. LAMICTAL [Concomitant]
  4. INDERAL [Concomitant]

REACTIONS (9)
  - CLINODACTYLY [None]
  - DRUG EXPOSURE DURING PREGNANCY [None]
  - DRUG WITHDRAWAL SYNDROME [None]
  - DYSMORPHISM [None]
  - HYPOSPADIAS [None]
  - MICROCEPHALY [None]
  - PATENT DUCTUS ARTERIOSUS [None]
  - PULMONARY HYPERTENSION [None]
  - TALIPES [None]
